FAERS Safety Report 24810582 (Version 1)
Quarter: 2025Q1

REPORT INFORMATION
  Report Type: Spontaneous
  Country: US (occurrence: US)
  Receive Date: 20250106
  Receipt Date: 20250106
  Transmission Date: 20250409
  Serious: No
  Sender: DR REDDYS
  Company Number: None

PATIENT
  Age: 36 Year
  Sex: Male

DRUGS (10)
  1. CLOZAPINE [Suspect]
     Active Substance: CLOZAPINE
     Indication: Schizophrenia
     Dosage: FROM DAYS OF THERAPY 7 TO 26
  2. CLOZAPINE [Suspect]
     Active Substance: CLOZAPINE
     Dosage: FROM DAYS OF THERAPY 27 TO 32
  3. CLOZAPINE [Suspect]
     Active Substance: CLOZAPINE
     Dosage: FROM DAYS OF THERAPY 33 TO 77
  4. CLOZAPINE [Suspect]
     Active Substance: CLOZAPINE
     Dosage: DAYS OF THERAPY 78 TO 610
  5. CLOZAPINE [Suspect]
     Active Substance: CLOZAPINE
     Dosage: DAYS OF THERAPY 611 TO 677
  6. CLOZAPINE [Suspect]
     Active Substance: CLOZAPINE
     Dosage: DAYS OF THERAPY 705 TO 737
  7. CLOZAPINE [Suspect]
     Active Substance: CLOZAPINE
     Dosage: DAYS OF THERAPY 765 TO 1433
  8. CLOZAPINE [Suspect]
     Active Substance: CLOZAPINE
     Dosage: DAYS OF THERAPY 1465 TO 1467
  9. CLOZAPINE [Suspect]
     Active Substance: CLOZAPINE
     Dosage: DAYS OF THERAPY 1468 TO 1897
  10. CLOZAPINE [Suspect]
     Active Substance: CLOZAPINE
     Dosage: DAYS OF THERAPY 1899 TO DAYS OF THERAPY 1920

REACTIONS (1)
  - Eosinopenia [Unknown]
